FAERS Safety Report 11371485 (Version 3)
Quarter: 2015Q4

REPORT INFORMATION
  Report Type: Spontaneous
  Country: US (occurrence: US)
  Receive Date: 20150812
  Receipt Date: 20151125
  Transmission Date: 20160304
  Serious: Yes (Other)
  Sender: FDA-Public Use
  Company Number: US-PFIZER INC-2015255465

PATIENT
  Age: 68 Year
  Sex: Female

DRUGS (1)
  1. SUTENT [Suspect]
     Active Substance: SUNITINIB MALATE
     Indication: RENAL CANCER
     Dosage: 25 MG, CYCLIC (EVERY DAY (28DAYS) 2 WEEKS OFF)

REACTIONS (3)
  - Intervertebral disc protrusion [Recovered/Resolved]
  - Arthritis [Recovered/Resolved]
  - Gait disturbance [Not Recovered/Not Resolved]
